FAERS Safety Report 9733749 (Version 2)
Quarter: 2013Q4

REPORT INFORMATION
  Report Type: Report from Study
  Country: AR (occurrence: AR)
  Receive Date: 20131205
  Receipt Date: 20131220
  Transmission Date: 20140711
  Serious: Yes (Death)
  Sender: FDA-Public Use
  Company Number: PHHY2013AR142058

PATIENT
  Sex: Male

DRUGS (2)
  1. DIOVAN [Suspect]
     Dosage: 160 MG, UNK
     Route: 048
  2. EXFORGE [Suspect]
     Dosage: 1 DF, (160MG VALS AND 5MG AMLO), UNK
     Route: 048

REACTIONS (1)
  - Bladder cancer [Fatal]
